FAERS Safety Report 26219109 (Version 1)
Quarter: 2025Q4

REPORT INFORMATION
  Report Type: Spontaneous
  Country: US (occurrence: US)
  Receive Date: 20251231
  Receipt Date: 20251231
  Transmission Date: 20260117
  Serious: Yes (Hospitalization, Other)
  Sender: BRISTOL-MYERS SQUIBB COMPANY
  Company Number: US-BRISTOL-MYERS SQUIBB COMPANY-2025-173522

PATIENT
  Age: 76 Year
  Sex: Female
  Weight: 87.04 kg

DRUGS (7)
  1. POMALYST [Suspect]
     Active Substance: POMALIDOMIDE
     Indication: Plasma cell myeloma
     Route: 048
  2. DEXAMETHASONE [Suspect]
     Active Substance: DEXAMETHASONE
     Indication: Product used for unknown indication
  3. CARFILZOMIB [Suspect]
     Active Substance: CARFILZOMIB
     Indication: Product used for unknown indication
  4. ZOMETA [Suspect]
     Active Substance: ZOLEDRONIC ACID
     Indication: Product used for unknown indication
  5. ZOMETA [Suspect]
     Active Substance: ZOLEDRONIC ACID
  6. ZOMETA [Suspect]
     Active Substance: ZOLEDRONIC ACID
  7. ZOMETA [Suspect]
     Active Substance: ZOLEDRONIC ACID
     Dates: start: 202309

REACTIONS (4)
  - Gingivitis [Unknown]
  - Osteonecrosis [Unknown]
  - Metastases to bone [Unknown]
  - Hypercalcaemia of malignancy [Unknown]
